FAERS Safety Report 21686156 (Version 1)
Quarter: 2022Q4

REPORT INFORMATION
  Report Type: Report from Study
  Country: US (occurrence: US)
  Receive Date: 20221206
  Receipt Date: 20221206
  Transmission Date: 20230113
  Serious: No
  Sender: FDA-Public Use
  Company Number: US-ABBVIE-4181082

PATIENT
  Sex: Female

DRUGS (11)
  1. HUMIRA [Suspect]
     Active Substance: ADALIMUMAB
     Indication: Rheumatoid arthritis
     Route: 058
  2. Potassium 99mg [Concomitant]
     Indication: Product used for unknown indication
  3. BUSPIRONE [Concomitant]
     Active Substance: BUSPIRONE HYDROCHLORIDE
     Indication: Product used for unknown indication
  4. LIDOZEN [Concomitant]
     Active Substance: LIDOCAINE HYDROCHLORIDE\MENTHOL
     Indication: Product used for unknown indication
     Dosage: PATCH
  5. Xarelto 50 mg [Concomitant]
     Indication: Product used for unknown indication
  6. HYDROCHLOROTHIAZIDE [Concomitant]
     Active Substance: HYDROCHLOROTHIAZIDE
     Indication: Product used for unknown indication
  7. TIZANIDINE HYDROCHLORIDE [Concomitant]
     Active Substance: TIZANIDINE HYDROCHLORIDE
     Indication: Product used for unknown indication
  8. FOLIC ACID [Concomitant]
     Active Substance: FOLIC ACID
     Indication: Product used for unknown indication
     Dosage: POWDER
  9. Oxycodone HCL 15 mg [Concomitant]
     Indication: Product used for unknown indication
  10. Isosorbide D [Concomitant]
     Indication: Product used for unknown indication
  11. Iron 28 mg [Concomitant]
     Indication: Product used for unknown indication

REACTIONS (3)
  - Joint lock [Not Recovered/Not Resolved]
  - Drug ineffective [Unknown]
  - Pain in extremity [Not Recovered/Not Resolved]
